FAERS Safety Report 5214094-7 (Version None)
Quarter: 2007Q1

REPORT INFORMATION
  Report Type: 
  Country: None (occurrence: None)
  Receive Date: 20070122
  Receipt Date: 20070115
  Transmission Date: 20070707
  Serious: Yes (Other)
  Sender: FDA-Public Use
  Company Number: PHBS2007BE00935

PATIENT
  Age: 28 Year
  Sex: Female

DRUGS (1)
  1. MIACALCIN [Suspect]
     Indication: PERIOSTITIS
     Dosage: UNK, UNK
     Route: 058
     Dates: start: 20061201, end: 20070108

REACTIONS (2)
  - BACK PAIN [None]
  - RENAL PAIN [None]
